FAERS Safety Report 7097623-0 (Version None)
Quarter: 2010Q4

REPORT INFORMATION
  Report Type: 
  Country: None (occurrence: None)
  Receive Date: 20101112
  Receipt Date: 20101104
  Transmission Date: 20110411
  Serious: Yes (Hospitalization)
  Sender: FDA-Public Use
  Company Number: US-BIOGENIDEC-2010BI035728

PATIENT
  Age: 37 Year
  Sex: Female
  Weight: 54 kg

DRUGS (12)
  1. TYSABRI [Suspect]
     Indication: MULTIPLE SCLEROSIS
     Route: 042
     Dates: start: 20041101, end: 20050201
  2. TYSABRI [Suspect]
     Route: 042
     Dates: start: 20070518
  3. LIPITOR [Concomitant]
     Indication: HYPERLIPIDAEMIA
  4. MULTI-VITAMIN [Concomitant]
  5. NAMENDA [Concomitant]
  6. LOVAZA [Concomitant]
  7. SYNTHROID [Concomitant]
  8. VESICARE [Concomitant]
  9. VITAMIN D3 [Concomitant]
  10. WELLBUTRIN [Concomitant]
  11. GINKO BILOBA [Concomitant]
  12. VITAMIN B-12 [Concomitant]

REACTIONS (5)
  - ALVEOLITIS ALLERGIC [None]
  - CONSTIPATION [None]
  - HEADACHE [None]
  - HYPOALBUMINAEMIA [None]
  - SINUSITIS [None]
